FAERS Safety Report 7239921-3 (Version None)
Quarter: 2011Q1

REPORT INFORMATION
  Report Type: 
  Country: None (occurrence: None)
  Receive Date: 20110124
  Receipt Date: 20110112
  Transmission Date: 20110831
  Serious: Yes (Hospitalization)
  Sender: FDA-Public Use
  Company Number: US-BIOGENIDEC-2010BI036270

PATIENT
  Age: 56 Year
  Sex: Female
  Weight: 47 kg

DRUGS (17)
  1. LISINOPRIL [Concomitant]
     Route: 048
  2. LEVOTHROID [Concomitant]
     Indication: HYPOTHYROIDISM
     Route: 048
  3. DIOVAN [Concomitant]
  4. FOLTX [Concomitant]
  5. TYSABRI [Suspect]
     Indication: MULTIPLE SCLEROSIS
     Route: 042
     Dates: start: 20100209
  6. VALIUM [Concomitant]
  7. TYSABRI [Suspect]
     Route: 042
     Dates: start: 20060926, end: 20090908
  8. SEROQUEL [Concomitant]
     Route: 048
  9. XANAX [Concomitant]
  10. LISINOPRIL [Concomitant]
     Indication: HYPERTENSION
     Route: 048
  11. ASPIRIN [Concomitant]
  12. MS CONTIN [Concomitant]
  13. LYRICA [Concomitant]
     Route: 048
  14. NEXIUM [Concomitant]
     Indication: GASTROOESOPHAGEAL REFLUX DISEASE
  15. ALPRAZOLAM [Concomitant]
     Indication: ANXIETY
     Route: 048
  16. ESTRATEST [Concomitant]
     Route: 048
  17. ACID GONE [Concomitant]
     Indication: GASTROOESOPHAGEAL REFLUX DISEASE
     Route: 048

REACTIONS (4)
  - PLEURAL EFFUSION [None]
  - PNEUMONIA [None]
  - FALL [None]
  - NAUSEA [None]
